FAERS Safety Report 6429905-7 (Version None)
Quarter: 2009Q4

REPORT INFORMATION
  Report Type: 
  Country: None (occurrence: None)
  Receive Date: 20091103
  Receipt Date: 20091022
  Transmission Date: 20100525
  Serious: Yes (Hospitalization)
  Sender: FDA-Public Use
  Company Number: 2009AL006776

PATIENT
  Age: 38 Year
  Sex: Male

DRUGS (4)
  1. AMLODIPINE BESYLATE [Suspect]
     Dosage: 630 MG; X1; UNK
  2. CITALOPRAM HYDROBROMIDE [Suspect]
     Dosage: UNKNOWN; UNK; UNK
  3. FEVERALL [Suspect]
  4. ZOPICLONE [Concomitant]

REACTIONS (9)
  - ACIDOSIS [None]
  - CARDIAC FAILURE [None]
  - COMA [None]
  - DILATATION VENTRICULAR [None]
  - EJECTION FRACTION DECREASED [None]
  - HYPERTENSION [None]
  - HYPOPERFUSION [None]
  - HYPOTENSION [None]
  - PNEUMONIA [None]
